FAERS Safety Report 4501944-2 (Version None)
Quarter: 2004Q4

REPORT INFORMATION
  Report Type: 
  Country: None (occurrence: None)
  Receive Date: 20041109
  Receipt Date: 20041028
  Transmission Date: 20050328
  Serious: Yes (Hospitalization)
  Sender: FDA-Public Use
  Company Number: 2004242483PH

PATIENT
  Age: 20 Year
  Sex: Male

DRUGS (2)
  1. ZYVOX [Suspect]
     Indication: CRANIOTOMY
     Dosage: BID
     Dates: start: 20041001, end: 20041001
  2. CEFTAZIDIME SODIUM [Concomitant]

REACTIONS (4)
  - DRUG INEFFECTIVE [None]
  - ENCEPHALITIS [None]
  - ESCHERICHIA INFECTION [None]
  - POSTOPERATIVE INFECTION [None]
